FAERS Safety Report 5612206-4 (Version None)
Quarter: 2008Q1

REPORT INFORMATION
  Report Type: 
  Country: None (occurrence: None)
  Receive Date: 20080128
  Receipt Date: 20071025
  Transmission Date: 20080703
  Serious: Yes (Disabling)
  Sender: FDA-Public Use
  Company Number: 2007S1011072

PATIENT
  Age: 62 Year
  Sex: Male

DRUGS (3)
  1. SERTRALINE [Suspect]
     Indication: MEMORY IMPAIRMENT
     Dosage: 50 MG; ORAL; DAILY
     Route: 048
     Dates: start: 20060113, end: 20060114
  2. SERTRALINE [Suspect]
     Indication: SLEEP DISORDER
     Dosage: 50 MG; ORAL; DAILY
     Route: 048
     Dates: start: 20060113, end: 20060114
  3. CODEINE SUL TAB [Concomitant]

REACTIONS (15)
  - ABDOMINAL DISTENSION [None]
  - ARTHRALGIA [None]
  - CHEST PAIN [None]
  - DERMATITIS ALLERGIC [None]
  - DIARRHOEA [None]
  - DYSPEPSIA [None]
  - DYSPNOEA [None]
  - GASTROINTESTINAL DISORDER [None]
  - GASTROOESOPHAGEAL REFLUX DISEASE [None]
  - HOT FLUSH [None]
  - HYPOAESTHESIA [None]
  - MYALGIA [None]
  - ODYNOPHAGIA [None]
  - PARAESTHESIA [None]
  - TREMOR [None]
